FAERS Safety Report 25462797 (Version 1)
Quarter: 2025Q2

REPORT INFORMATION
  Report Type: Spontaneous
  Country: US (occurrence: None)
  Receive Date: 20250620
  Receipt Date: 20250620
  Transmission Date: 20250717
  Serious: Yes (Hospitalization)
  Sender: FDA-CTU
  Company Number: None

PATIENT
  Age: 60 Year
  Sex: Male

DRUGS (4)
  1. RIFABUTIN [Suspect]
     Active Substance: RIFABUTIN
     Dates: start: 20250528, end: 20250530
  2. CEFEPIME [Concomitant]
     Active Substance: CEFEPIME HYDROCHLORIDE
     Dates: start: 20250528, end: 20250604
  3. MEROPENEM [Suspect]
     Active Substance: MEROPENEM
  4. VANCOMYCIN [Suspect]
     Active Substance: VANCOMYCIN

REACTIONS (4)
  - Neutropenia [None]
  - Therapy interrupted [None]
  - Infection [None]
  - Agranulocytosis [None]

NARRATIVE: CASE EVENT DATE: 20250603
